FAERS Safety Report 25157581 (Version 2)
Quarter: 2025Q2

REPORT INFORMATION
  Report Type: Spontaneous
  Country: US (occurrence: US)
  Receive Date: 20250403
  Receipt Date: 20250428
  Transmission Date: 20250717
  Serious: No
  Sender: BIOGEN
  Company Number: US-BIOGEN-2025BI01304742

PATIENT
  Sex: Female

DRUGS (1)
  1. SKYCLARYS [Suspect]
     Active Substance: OMAVELOXOLONE
     Indication: Friedreich^s ataxia
     Route: 050
     Dates: start: 20230703

REACTIONS (5)
  - Initial insomnia [Unknown]
  - Middle insomnia [Unknown]
  - Asthenia [Unknown]
  - Vitamin D deficiency [Unknown]
  - Depression [Unknown]
